FAERS Safety Report 7082087 (Version 2)
Quarter: 2020Q4

REPORT INFORMATION
  Report Type: Spontaneous
  Country: ES (occurrence: ES)
  Receive Date: 20090807
  Receipt Date: 20201005
  Transmission Date: 20210114
  Serious: Yes (Hospitalization, Other)
  Sender: FDA-Public Use
  Company Number: GXKR2009ES08712

PATIENT
  Age: 64 Year
  Sex: Female

DRUGS (7)
  1. CLOZAPINE. [Interacting]
     Active Substance: CLOZAPINE
     Indication: SCHIZOPHRENIA
     Dosage: 600 MG, QD (INITIATED 11 YEARS AGO)
     Route: 065
  2. HALOPERIDOL. [Interacting]
     Active Substance: HALOPERIDOL
     Indication: SCHIZOPHRENIA
     Dosage: 36 MG, QD (INITIATED 3 YEARS AGO)
     Route: 065
  3. VALPROATE [Suspect]
     Active Substance: VALPROIC ACID
     Indication: SCHIZOPHRENIA
     Dosage: 300 MG, QD
     Route: 065
  4. LEVOMEPROMAZINE [Concomitant]
     Active Substance: LEVOMEPROMAZINE
     Indication: PRODUCT USED FOR UNKNOWN INDICATION
     Dosage: 100 MG, QD (AT NIGHT)
     Route: 065
  5. OLANZAPINE. [Interacting]
     Active Substance: OLANZAPINE
     Indication: SCHIZOPHRENIA
     Dosage: 30 MG, QD (INITIATED 1 YEAR AGO)
     Route: 065
  6. BIPERIDEN [Concomitant]
     Active Substance: BIPERIDEN
     Indication: PRODUCT USED FOR UNKNOWN INDICATION
     Dosage: 1.5 MG, QD
     Route: 065
  7. VALPROATE [Interacting]
     Active Substance: VALPROIC ACID
     Dosage: 1500 MG, QD (INCREASED TO 1500 MG/DAY)
     Route: 065

REACTIONS (7)
  - Productive cough [Recovered/Resolved]
  - Pleural effusion [Recovered/Resolved]
  - Eosinophilia [Recovered/Resolved]
  - Atelectasis [Recovered/Resolved]
  - Pleural fluid analysis [Recovered/Resolved]
  - Pericardial effusion [Recovered/Resolved]
  - Drug interaction [Unknown]
